FAERS Safety Report 21412056 (Version 1)
Quarter: 2022Q4

REPORT INFORMATION
  Report Type: Spontaneous
  Country: US (occurrence: None)
  Receive Date: 20221004
  Receipt Date: 20221004
  Transmission Date: 20230112
  Serious: Yes (Hospitalization)
  Sender: FDA-Public Use
  Company Number: None

PATIENT
  Age: 69 Year
  Sex: Female
  Weight: 72.57 kg

DRUGS (17)
  1. IMATINIB MESYLATE [Suspect]
     Active Substance: IMATINIB MESYLATE
     Indication: Chronic myeloid leukaemia
     Dosage: FREQUENCY : DAILY;?
     Route: 048
     Dates: start: 202108
  2. ADVAIR DISKUS [Concomitant]
     Active Substance: FLUTICASONE PROPIONATE\SALMETEROL XINAFOATE
  3. ALBUTEROL SULFATE [Concomitant]
     Active Substance: ALBUTEROL SULFATE
  4. ASPIRIN [Concomitant]
     Active Substance: ASPIRIN
  5. Atorvastatin Daliresp [Concomitant]
  6. EPINEPHRINE [Concomitant]
     Active Substance: EPINEPHRINE
  7. FLUTICASONE PROPIONATE [Concomitant]
     Active Substance: FLUTICASONE PROPIONATE
  8. GUAIFENESIN [Concomitant]
  9. HYDROXYZINE [Concomitant]
  10. ALBUTEROL\IPRATROPIUM [Concomitant]
     Active Substance: ALBUTEROL\IPRATROPIUM
  11. LEVOTHYROXINE SODIUM [Concomitant]
     Active Substance: LEVOTHYROXINE SODIUM
  12. MAGNESIUM OXIDE [Concomitant]
     Active Substance: MAGNESIUM OXIDE
  13. MUCINEX [Concomitant]
     Active Substance: GUAIFENESIN
  14. OMEPRAZOLE [Concomitant]
     Active Substance: OMEPRAZOLE
  15. TRELEGY ELLIPTA [Concomitant]
     Active Substance: FLUTICASONE FUROATE\UMECLIDINIUM BROMIDE\VILANTEROL TRIFENATATE
  16. VITAMIN B12 [Concomitant]
     Active Substance: CYANOCOBALAMIN
  17. VITAMIN D2 [Concomitant]
     Active Substance: ERGOCALCIFEROL

REACTIONS (2)
  - Sinusitis [None]
  - Chronic obstructive pulmonary disease [None]
